FAERS Safety Report 7261752-9 (Version None)
Quarter: 2011Q1

REPORT INFORMATION
  Report Type: 
  Country: None (occurrence: None)
  Receive Date: 20110130
  Receipt Date: 20101104
  Transmission Date: 20110831
  Serious: Yes (Death, Hospitalization)
  Sender: FDA-Public Use
  Company Number: US-ABBOTT-10P-163-0683237-00

PATIENT
  Age: 60 Year
  Sex: Male

DRUGS (2)
  1. METHOTREXATE [Concomitant]
     Indication: RHEUMATOID ARTHRITIS
     Dates: end: 20080101
  2. HUMIRA [Suspect]
     Indication: RHEUMATOID ARTHRITIS
     Dates: end: 20080101

REACTIONS (2)
  - DISSEMINATED TUBERCULOSIS [None]
  - UPPER RESPIRATORY TRACT INFECTION [None]
